FAERS Safety Report 5759217-6 (Version None)
Quarter: 2008Q2

REPORT INFORMATION
  Report Type: 
  Country: None (occurrence: None)
  Receive Date: 20080604
  Receipt Date: 20080524
  Transmission Date: 20081010
  Serious: Yes (Other)
  Sender: FDA-Public Use
  Company Number: US-PFIZER INC-2008044808

PATIENT
  Sex: Female
  Weight: 105 kg

DRUGS (3)
  1. CHANTIX [Suspect]
     Indication: EX-SMOKER
     Dates: start: 20080522, end: 20080524
  2. KLONOPIN [Concomitant]
  3. ANALGESICS [Concomitant]

REACTIONS (6)
  - DIZZINESS [None]
  - LOSS OF CONSCIOUSNESS [None]
  - MALAISE [None]
  - NAUSEA [None]
  - PANIC ATTACK [None]
  - TREMOR [None]
